FAERS Safety Report 8874008 (Version 2)
Quarter: 2014Q1

REPORT INFORMATION
  Report Type: Spontaneous
  Country: US (occurrence: US)
  Receive Date: 20121023
  Receipt Date: 20140107
  Transmission Date: 20141002
  Serious: Yes (Other)
  Sender: FDA-Public Use
  Company Number: US-ASTRAZENECA-2012SE79101

PATIENT
  Age: 72 Year
  Sex: Male
  Weight: 79.4 kg

DRUGS (5)
  1. NEXIUM [Suspect]
     Indication: DYSPEPSIA
     Route: 048
  2. PLAVIX [Concomitant]
     Indication: CARDIAC DISORDER
     Route: 048
  3. LIPITOR [Concomitant]
     Indication: CARDIAC DISORDER
     Route: 048
  4. NITROGLYCERIN [Concomitant]
     Indication: CARDIAC DISORDER
     Dosage: AS REQUIRED
  5. ENALAPRIL [Concomitant]
     Indication: CARDIAC DISORDER
     Route: 048

REACTIONS (4)
  - Cardiac disorder [Not Recovered/Not Resolved]
  - Cardiac disorder [Unknown]
  - Dyspepsia [Not Recovered/Not Resolved]
  - Drug dose omission [Not Recovered/Not Resolved]
